FAERS Safety Report 18567185 (Version 4)
Quarter: 2024Q3

REPORT INFORMATION
  Report Type: Spontaneous
  Country: US (occurrence: US)
  Receive Date: 20201202
  Receipt Date: 20240803
  Transmission Date: 20241016
  Serious: Yes (Other)
  Sender: AMGEN
  Company Number: US-AMGEN-USASP2020192976

PATIENT
  Sex: Female

DRUGS (2)
  1. PROLIA [Suspect]
     Active Substance: DENOSUMAB
     Indication: Osteoporosis postmenopausal
     Dosage: UNK
     Route: 065
     Dates: start: 201610
  2. PROLIA [Suspect]
     Active Substance: DENOSUMAB
     Indication: Osteopenia
     Dosage: UNK
     Route: 065
     Dates: start: 202401

REACTIONS (7)
  - Bone loss [Unknown]
  - Sinus perforation [Unknown]
  - Tooth abscess [Unknown]
  - Root canal infection [Unknown]
  - Dental operation [Unknown]
  - Condition aggravated [Unknown]
  - Dental root perforation [Unknown]
